FAERS Safety Report 20215013 (Version 3)
Quarter: 2021Q4

REPORT INFORMATION
  Report Type: Report from Study
  Country: RU (occurrence: RU)
  Receive Date: 20211222
  Receipt Date: 20211231
  Transmission Date: 20220303
  Serious: Yes (Death)
  Sender: FDA-Public Use
  Company Number: RU-ABBVIE-21K-251-4206470-00

PATIENT
  Age: 67 Year
  Sex: Female
  Weight: 75 kg

DRUGS (19)
  1. VENCLEXTA [Suspect]
     Active Substance: VENETOCLAX
     Indication: Chronic lymphocytic leukaemia
     Route: 048
     Dates: start: 20210722, end: 20210728
  2. VENCLEXTA [Suspect]
     Active Substance: VENETOCLAX
     Route: 048
     Dates: start: 20210729, end: 20210804
  3. VENCLEXTA [Suspect]
     Active Substance: VENETOCLAX
     Route: 048
     Dates: start: 20210805, end: 20210811
  4. VENCLEXTA [Suspect]
     Active Substance: VENETOCLAX
     Route: 048
     Dates: start: 20210812, end: 20210818
  5. VENCLEXTA [Suspect]
     Active Substance: VENETOCLAX
     Route: 048
     Dates: start: 20210819, end: 20210825
  6. VENCLEXTA [Suspect]
     Active Substance: VENETOCLAX
     Route: 048
     Dates: start: 20210826, end: 20210922
  7. VENCLEXTA [Suspect]
     Active Substance: VENETOCLAX
     Route: 048
     Dates: start: 20210923, end: 20211020
  8. GAZYVA [Concomitant]
     Active Substance: OBINUTUZUMAB
     Indication: Chronic lymphocytic leukaemia
     Dates: start: 20210701, end: 20210701
  9. GAZYVA [Concomitant]
     Active Substance: OBINUTUZUMAB
     Dates: start: 20210702, end: 20210702
  10. GAZYVA [Concomitant]
     Active Substance: OBINUTUZUMAB
     Dates: start: 20210708, end: 20210708
  11. GAZYVA [Concomitant]
     Active Substance: OBINUTUZUMAB
     Dates: start: 20210715, end: 20210715
  12. GAZYVA [Concomitant]
     Active Substance: OBINUTUZUMAB
     Dates: start: 20210729, end: 20210729
  13. GAZYVA [Concomitant]
     Active Substance: OBINUTUZUMAB
     Dates: start: 20210826, end: 20210826
  14. GAZYVA [Concomitant]
     Active Substance: OBINUTUZUMAB
     Dates: start: 20210923, end: 20210923
  15. METFORMIN [Concomitant]
     Active Substance: METFORMIN HYDROCHLORIDE
     Indication: Product used for unknown indication
     Route: 048
     Dates: start: 2000
  16. METFORMIN [Concomitant]
     Active Substance: METFORMIN HYDROCHLORIDE
     Route: 048
     Dates: start: 2000
  17. GLICLAZIDUM [Concomitant]
     Indication: Product used for unknown indication
     Route: 048
     Dates: start: 2000
  18. SITAGLIPTIN [Concomitant]
     Active Substance: SITAGLIPTIN
     Indication: Product used for unknown indication
     Route: 048
     Dates: start: 2000
  19. INSULIN GLARGINE [Concomitant]
     Active Substance: INSULIN GLARGINE
     Indication: Product used for unknown indication
     Route: 058
     Dates: start: 2000

REACTIONS (2)
  - COVID-19 [Fatal]
  - Respiratory failure [Fatal]

NARRATIVE: CASE EVENT DATE: 20210101
